FAERS Safety Report 23064970 (Version 1)
Quarter: 2023Q4

REPORT INFORMATION
  Report Type: Spontaneous
  Country: US (occurrence: US)
  Receive Date: 20231013
  Receipt Date: 20231013
  Transmission Date: 20240109
  Serious: No
  Sender: FDA-Public Use
  Company Number: US-INCYTE CORPORATION-2023IN009796

PATIENT

DRUGS (1)
  1. PEMAZYRE [Suspect]
     Active Substance: PEMIGATINIB
     Indication: Malignant lymphoid neoplasm
     Dosage: UNK
     Route: 065

REACTIONS (3)
  - Hyperphosphataemia [Unknown]
  - Stomatitis [Unknown]
  - Pain in jaw [Unknown]
